FAERS Safety Report 5193907-1 (Version None)
Quarter: 2006Q4

REPORT INFORMATION
  Report Type: 
  Country: None (occurrence: None)
  Receive Date: 20061222
  Receipt Date: 20061206
  Transmission Date: 20070319
  Serious: Yes (Disabling, Other)
  Sender: FDA-Public Use
  Company Number: 151160USA

PATIENT
  Age: 57 Year
  Sex: Female

DRUGS (1)
  1. GABAPENTIN [Suspect]
     Dosage: 1500 MG (300 MG, 5 IN 1 D), ORAL
     Route: 048
     Dates: start: 20060201, end: 20061001

REACTIONS (4)
  - ACTIVITIES OF DAILY LIVING IMPAIRED [None]
  - CRYING [None]
  - OCULAR TOXICITY [None]
  - VISUAL ACUITY REDUCED [None]
